FAERS Safety Report 5571180-X (Version None)
Quarter: 2007Q4

REPORT INFORMATION
  Report Type: 
  Country: None (occurrence: None)
  Receive Date: 20071221
  Receipt Date: 20061227
  Transmission Date: 20080405
  Serious: No
  Sender: FDA-Public Use
  Company Number: A0632654A

PATIENT
  Age: 67 Year
  Sex: Male
  Weight: 76.4 kg

DRUGS (1)
  1. FLUTICASONE PROPIONATE [Suspect]
     Indication: DRUG USE FOR UNKNOWN INDICATION
     Dosage: 2SPR PER DAY
     Route: 045
     Dates: start: 20060101, end: 20061101

REACTIONS (2)
  - AGEUSIA [None]
  - ANOSMIA [None]
